FAERS Safety Report 8226814-8 (Version None)
Quarter: 2012Q1

REPORT INFORMATION
  Report Type: 
  Country: None (occurrence: None)
  Receive Date: 20120322
  Receipt Date: 20120315
  Transmission Date: 20120608
  Serious: Yes (Hospitalization)
  Sender: FDA-Public Use
  Company Number: JP-BAYER-2012-018650

PATIENT
  Age: 61 Year
  Sex: Male
  Weight: 63 kg

DRUGS (8)
  1. NORVASC [Concomitant]
     Dosage: 5 MG, QD
     Route: 048
     Dates: start: 20080327, end: 20080717
  2. MUCOSTA [Concomitant]
     Indication: GASTRITIS PROPHYLAXIS
     Dosage: 1 DF, PRN
     Route: 048
     Dates: start: 20080731
  3. SORAFENIB (RAF KINASE INHIBITOR) [Suspect]
     Dosage: 400 MG, DAILY
     Dates: start: 20080522
  4. SORAFENIB (RAF KINASE INHIBITOR) [Suspect]
     Indication: RENAL CELL CARCINOMA
     Dosage: 800 MG, DAILY
     Route: 048
     Dates: start: 20080424, end: 20080504
  5. CALBLOCK [Concomitant]
     Dosage: 16 MG, DAILY
     Route: 048
     Dates: start: 20080717
  6. SORAFENIB (RAF KINASE INHIBITOR) [Suspect]
     Dosage: 400 MG, DAILY
     Dates: start: 20080508, end: 20080518
  7. ENALAPRIL MALEATE [Concomitant]
     Dosage: 5 MG, QD
     Route: 048
     Dates: start: 20090430
  8. OLMESARTAN MEDOXOMIL [Concomitant]
     Dosage: 40 MG, DAILY
     Route: 048
     Dates: start: 20080327

REACTIONS (8)
  - BLADDER DISORDER [None]
  - LIPASE INCREASED [None]
  - ALOPECIA [None]
  - HYPOAESTHESIA [None]
  - DIARRHOEA [None]
  - BLOOD PHOSPHORUS DECREASED [None]
  - PALMAR-PLANTAR ERYTHRODYSAESTHESIA SYNDROME [None]
  - ANORECTAL DISORDER [None]
